FAERS Safety Report 6499769-4 (Version None)
Quarter: 2009Q4

REPORT INFORMATION
  Report Type: 
  Country: None (occurrence: None)
  Receive Date: 20091214
  Receipt Date: 20091202
  Transmission Date: 20100525
  Serious: Yes (Other)
  Sender: FDA-Public Use
  Company Number: 2009SP040135

PATIENT
  Age: 43 Year
  Sex: Female

DRUGS (1)
  1. NUVARING [Suspect]
     Dosage: NUVARING (ETONOGESTREL/ETHINYLESTRADIOL)

REACTIONS (2)
  - CONVULSION [None]
  - INAPPROPRIATE SCHEDULE OF DRUG ADMINISTRATION [None]
